FAERS Safety Report 7469893-8 (Version None)
Quarter: 2011Q2

REPORT INFORMATION
  Report Type: 
  Country: None (occurrence: None)
  Receive Date: 20110510
  Receipt Date: 20101125
  Transmission Date: 20111010
  Serious: Yes (Life-Threatening, Hospitalization)
  Sender: FDA-Public Use
  Company Number: GB-ROCHE-620131

PATIENT
  Age: 10 Year
  Sex: Male
  Weight: 32 kg

DRUGS (23)
  1. NELFINAVIR MESYLATE [Suspect]
     Dosage: RESTARTED
     Route: 065
  2. DIDANOSINE [Suspect]
     Indication: ANTIRETROVIRAL THERAPY
     Route: 065
  3. ABACAVIR [Suspect]
     Indication: ANTIRETROVIRAL THERAPY
     Route: 065
  4. MYCOPHENOLATE MOFETIL [Suspect]
     Route: 065
  5. SUSTIVA [Suspect]
     Dosage: RESTARTED
     Route: 048
  6. ABACAVIR SULFATE AND LAMIVUDINE [Suspect]
     Indication: HIV INFECTION
     Route: 065
  7. COTRIM [Suspect]
     Route: 065
  8. ZIDOVUDINE [Suspect]
     Route: 048
  9. RALTEGRAVIR [Suspect]
     Route: 065
  10. SIROLIMUS [Suspect]
     Route: 065
     Dates: start: 20070302, end: 20070701
  11. COTRIM [Suspect]
     Indication: ANTIRETROVIRAL THERAPY
     Route: 065
  12. LAMIVUDINE [Suspect]
     Dosage: RESTARTED
     Route: 048
  13. NELFINAVIR MESYLATE [Suspect]
     Indication: ANTIRETROVIRAL THERAPY
     Route: 065
  14. LAMIVUDINE [Suspect]
     Route: 048
  15. ZIDOVUDINE [Suspect]
     Route: 048
  16. LAMIVUDINE [Suspect]
     Indication: ANTIRETROVIRAL THERAPY
     Route: 048
     Dates: start: 20070330, end: 20070701
  17. SUSTIVA [Suspect]
     Indication: ANTIRETROVIRAL THERAPY
     Route: 048
     Dates: start: 20070302, end: 20070701
  18. DIDANOSINE [Suspect]
     Route: 065
  19. ZIDOVUDINE [Suspect]
     Route: 048
  20. PREDNISOLONE [Suspect]
     Route: 065
  21. RAPAMUNE [Suspect]
     Route: 065
  22. LAMIVUDINE [Suspect]
     Route: 048
  23. ZIDOVUDINE [Suspect]
     Indication: ANTIRETROVIRAL THERAPY
     Route: 048
     Dates: start: 20070330, end: 20070701

REACTIONS (30)
  - DISEASE RECURRENCE [None]
  - HEPATIC NECROSIS [None]
  - TOXICITY TO VARIOUS AGENTS [None]
  - OCULAR ICTERUS [None]
  - HEPATITIS [None]
  - HIV INFECTION [None]
  - HYPERTENSION [None]
  - PHARYNGITIS [None]
  - LIVER FUNCTION TEST ABNORMAL [None]
  - DRUG INEFFECTIVE [None]
  - JAUNDICE [None]
  - PYREXIA [None]
  - RENAL DISORDER [None]
  - HEPATIC ENCEPHALOPATHY [None]
  - MYOPATHY [None]
  - ACUTE HEPATIC FAILURE [None]
  - CHOLESTASIS [None]
  - URINE COLOUR ABNORMAL [None]
  - BLOOD IMMUNOGLOBULIN E INCREASED [None]
  - LIVER DISORDER [None]
  - TRANSPLANT REJECTION [None]
  - RASH [None]
  - GRAFT DYSFUNCTION [None]
  - HEPATOMEGALY [None]
  - LIVER TRANSPLANT [None]
  - HYPERLIPIDAEMIA [None]
  - CACHEXIA [None]
  - RENAL IMPAIRMENT [None]
  - LYMPHADENOPATHY [None]
  - HEPATIC FUNCTION ABNORMAL [None]
